FAERS Safety Report 6152688-5 (Version None)
Quarter: 2009Q2

REPORT INFORMATION
  Report Type: 
  Country: None (occurrence: None)
  Receive Date: 20090413
  Receipt Date: 20090402
  Transmission Date: 20091009
  Serious: Yes (Disabling)
  Sender: FDA-Public Use
  Company Number: GB-ROCHE-621387

PATIENT
  Sex: Male
  Weight: 95 kg

DRUGS (5)
  1. XELODA [Suspect]
     Indication: COLON CANCER
     Dosage: FREQUENCY: 14 DAYS/3 WEEKS. INIDICATION: T3N0 COLON CANCER
     Route: 048
     Dates: start: 20081128
  2. XELODA [Suspect]
     Dosage: FREQUENCY: 14 DAYS/3 WEEKS
     Route: 048
  3. INSULIN MIXTARD 30 HM [Concomitant]
     Indication: DIABETES MELLITUS
     Dosage: REPORTED AS INSULIN MIXTARD
     Route: 030
  4. QUININE SULPHATE [Concomitant]
     Route: 048
  5. STATIN [Concomitant]
     Indication: HYPERCHOLESTEROLAEMIA
     Route: 048

REACTIONS (1)
  - GLAUCOMA [None]
